FAERS Safety Report 19273551 (Version 1)
Quarter: 2021Q2

REPORT INFORMATION
  Report Type: Spontaneous
  Country: US (occurrence: US)
  Receive Date: 20210518
  Receipt Date: 20210518
  Transmission Date: 20210717
  Serious: No
  Sender: FDA-Public Use
  Company Number: None

PATIENT
  Sex: Female
  Weight: 58.5 kg

DRUGS (2)
  1. GAMUNEX [Suspect]
     Active Substance: HUMAN IMMUNOGLOBULIN G
     Route: 041
     Dates: start: 20210518, end: 20210518
  2. GAMUNEX C 10 [Concomitant]
     Dates: start: 20210518, end: 20210518

REACTIONS (2)
  - Pruritus [None]
  - Urticaria [None]
